FAERS Safety Report 9163181 (Version 1)
Quarter: 2013Q1

REPORT INFORMATION
  Report Type: Spontaneous
  Country: BE (occurrence: BE)
  Receive Date: 20130314
  Receipt Date: 20130314
  Transmission Date: 20140127
  Serious: Yes (Death, Hospitalization)
  Sender: FDA-Public Use
  Company Number: BE-B.I. PHARMACEUTICALS,INC./RIDGEFIELD-2013-BL-00127BL

PATIENT
  Sex: Male
  Weight: 70 kg

DRUGS (8)
  1. PRADAXA [Suspect]
     Indication: ATRIAL FIBRILLATION
     Dosage: 220 MG
  2. OMEPRAZOLE [Concomitant]
     Dosage: 20 MG
  3. ASAFLOW [Concomitant]
     Dosage: 80 MG
  4. ZOCOR [Concomitant]
     Dosage: 20 MG
  5. BISOPROLOL [Concomitant]
     Dosage: 5 MG
  6. BURINEX [Concomitant]
     Dosage: 1 MG
  7. MEDROL [Concomitant]
     Indication: DYSPNOEA EXERTIONAL
     Dosage: 16 MG
     Dates: start: 201205, end: 20120712
  8. D-CURE [Concomitant]

REACTIONS (5)
  - Pulmonary alveolar haemorrhage [Fatal]
  - Dyspnoea exertional [Unknown]
  - Rhinitis [Unknown]
  - Pyrexia [Unknown]
  - Bronchitis [Unknown]
